FAERS Safety Report 10314919 (Version 1)
Quarter: 2014Q3

REPORT INFORMATION
  Report Type: Spontaneous
  Country: JP (occurrence: JP)
  Receive Date: 20140718
  Receipt Date: 20140718
  Transmission Date: 20150326
  Serious: Yes (Other)
  Sender: FDA-Public Use
  Company Number: JP-ASTRAZENECA-2014SE52022

PATIENT

DRUGS (5)
  1. SEROQUEL [Suspect]
     Active Substance: QUETIAPINE FUMARATE
     Route: 048
  2. OTHER DRUGS [Concomitant]
     Active Substance: UNSPECIFIED INGREDIENT
     Route: 048
  3. DEPAKENE [Concomitant]
     Active Substance: VALPROIC ACID
     Route: 048
  4. LIVALO [Concomitant]
     Active Substance: PITAVASTATIN CALCIUM
  5. TEGRETOL [Concomitant]
     Active Substance: CARBAMAZEPINE
     Route: 048

REACTIONS (2)
  - Neuroleptic malignant syndrome [Unknown]
  - Amylase increased [Unknown]
